FAERS Safety Report 5860782-9 (Version None)
Quarter: 2008Q3

REPORT INFORMATION
  Report Type: 
  Country: None (occurrence: None)
  Receive Date: 20080827
  Receipt Date: 20071126
  Transmission Date: 20090109
  Serious: No
  Sender: FDA-Public Use
  Company Number: US-ABBOTT-07P-163-0425934-00

PATIENT
  Sex: Male
  Weight: 104.54 kg

DRUGS (6)
  1. COATED PDS [Suspect]
     Indication: LOW DENSITY LIPOPROTEIN INCREASED
     Route: 048
     Dates: start: 20071120, end: 20071123
  2. AVANDAMET [Concomitant]
     Indication: DIABETES MELLITUS
     Route: 048
  3. DOXAZOSIN MESYLATE [Concomitant]
     Indication: HYPERTENSION
     Route: 048
  4. LISINOPRIL [Concomitant]
     Indication: HYPERTENSION
     Route: 048
  5. DILTIAZEM HCL [Concomitant]
     Indication: HYPERTENSION
     Route: 048
  6. CARVEDILOL [Concomitant]
     Indication: HYPERTENSION
     Route: 048

REACTIONS (3)
  - CHEST PAIN [None]
  - DIZZINESS [None]
  - DYSPNOEA [None]
